FAERS Safety Report 7750895-9 (Version None)
Quarter: 2011Q3

REPORT INFORMATION
  Report Type: 
  Country: None (occurrence: None)
  Receive Date: 20110914
  Receipt Date: 20110901
  Transmission Date: 20111222
  Serious: No
  Sender: FDA-Public Use
  Company Number: US-B.I. PHARMACEUTICALS,INC./RIDGEFIELD-2011-BP-21324BP

PATIENT
  Sex: Female

DRUGS (13)
  1. LIPITOR [Concomitant]
     Indication: PROPHYLAXIS
     Dosage: 20 MG
     Route: 048
  2. POTASSIUM CHLORIDE [Concomitant]
     Indication: PROPHYLAXIS
     Dosage: 20 MEQ
     Route: 048
  3. DIGOXIN [Concomitant]
     Indication: ATRIAL FIBRILLATION
     Dosage: 0.125 MG
     Route: 048
  4. ASPIRIN [Concomitant]
     Indication: PROPHYLAXIS
     Dosage: 81 MG
     Route: 048
  5. PRADAXA [Suspect]
     Indication: ATRIAL FIBRILLATION
     Dosage: 300 MG
     Route: 048
     Dates: start: 20110601
  6. BUMETANIDE [Concomitant]
     Indication: FLUID RETENTION
     Route: 048
  7. EVISTA [Concomitant]
     Indication: OSTEOPOROSIS
     Dosage: 60 MG
     Route: 048
  8. SYNTHROID [Concomitant]
     Indication: HYPOTHYROIDISM
     Dosage: 0.112 MG
     Route: 048
  9. TOPROL-XL [Concomitant]
     Indication: HYPERTENSION
     Dosage: 100 MG
     Route: 048
  10. PREVACID [Concomitant]
     Indication: GASTROOESOPHAGEAL REFLUX DISEASE
     Dosage: 30 MG
     Route: 048
  11. RECLAST [Concomitant]
     Indication: OSTEOPOROSIS
     Route: 048
  12. AVALIDE [Concomitant]
     Indication: HYPERTENSION
     Route: 048
  13. NIASPAN [Concomitant]
     Indication: LIPID METABOLISM DISORDER
     Dosage: 200 MG
     Route: 048

REACTIONS (1)
  - ALOPECIA [None]
